FAERS Safety Report 21831317 (Version 2)
Quarter: 2023Q1

REPORT INFORMATION
  Report Type: Report from Study
  Country: US (occurrence: US)
  Receive Date: 20230106
  Receipt Date: 20230315
  Transmission Date: 20230418
  Serious: No
  Sender: FDA-Public Use
  Company Number: US-ABBVIE-4256928

PATIENT
  Age: 51 Year

DRUGS (4)
  1. RINVOQ [Suspect]
     Active Substance: UPADACITINIB
     Indication: Colitis ulcerative
     Dosage: 8 WEEKS
     Route: 048
  2. RINVOQ [Suspect]
     Active Substance: UPADACITINIB
     Indication: Colitis ulcerative
     Route: 048
     Dates: start: 20220908
  3. RINVOQ [Suspect]
     Active Substance: UPADACITINIB
     Indication: Colitis ulcerative
     Dosage: EXTENDED RELEASE, FORM STRENGTH 45 MILLIGRAM
     Route: 048
     Dates: start: 202210
  4. HYDROCORTISONE [Concomitant]
     Active Substance: HYDROCORTISONE
     Indication: Rash

REACTIONS (8)
  - Off label use [Unknown]
  - Rash pustular [Not Recovered/Not Resolved]
  - Arthralgia [Not Recovered/Not Resolved]
  - Musculoskeletal stiffness [Unknown]
  - Sensitive skin [Not Recovered/Not Resolved]
  - Frequent bowel movements [Unknown]
  - Joint stiffness [Unknown]
  - Flatulence [Unknown]

NARRATIVE: CASE EVENT DATE: 20230101
